FAERS Safety Report 13238571 (Version 1)
Quarter: 2017Q1

REPORT INFORMATION
  Report Type: Spontaneous
  Country: US (occurrence: US)
  Receive Date: 20170216
  Receipt Date: 20170216
  Transmission Date: 20170428
  Serious: No
  Sender: FDA-Public Use
  Company Number: US-ACTAVIS-2016-07032

PATIENT
  Sex: Female

DRUGS (1)
  1. LORATADINE/PSEUDOEPHEDRINE SULFATE (ACTAVIS LABORATORIES FL) [Suspect]
     Active Substance: LORATADINE\PSEUDOEPHEDRINE SULFATE
     Indication: PRODUCT USED FOR UNKNOWN INDICATION
     Dosage: 2 TABLET, SINGLE
     Route: 048
     Dates: start: 20160324, end: 20160324

REACTIONS (3)
  - Vomiting [Unknown]
  - Fatigue [Unknown]
  - Incorrect dose administered [Unknown]
